FAERS Safety Report 4503444-2 (Version None)
Quarter: 2004Q4

REPORT INFORMATION
  Report Type: 
  Country: None (occurrence: None)
  Receive Date: 20041112
  Receipt Date: 20041028
  Transmission Date: 20050328
  Serious: Yes (Life-Threatening, Hospitalization, Disabling, Other)
  Sender: FDA-Public Use
  Company Number: 2004242194GB

PATIENT
  Age: 79 Year
  Sex: Female
  Weight: 84 kg

DRUGS (4)
  1. CELEBREX [Suspect]
     Indication: ARTHRITIS
     Dosage: 200 MG, QD, ORAL
     Route: 048
     Dates: start: 20040425, end: 20040810
  2. MORPHINE [Concomitant]
  3. ITRACONAZOLE [Concomitant]
  4. TOLTERODINE [Concomitant]

REACTIONS (2)
  - HYPERKALAEMIA [None]
  - URTICARIA [None]
